FAERS Safety Report 4676863-1 (Version None)
Quarter: 2005Q2

REPORT INFORMATION
  Report Type: 
  Country: None (occurrence: None)
  Receive Date: 20050527
  Receipt Date: 20050516
  Transmission Date: 20051028
  Serious: Yes (Death, Life-Threatening, Hospitalization, Other)
  Sender: FDA-Public Use
  Company Number: 2004106719

PATIENT
  Age: 56 Year
  Sex: Female
  Weight: 58.2872 kg

DRUGS (21)
  1. NEURONTIN [Suspect]
     Indication: CONVULSION
     Dosage: 1500 MG (300 MG, 5 IN 1 D), ORAL
     Route: 048
     Dates: start: 20010301
  2. NEURONTIN [Suspect]
     Indication: NEUROPATHY PERIPHERAL
     Dosage: 1500 MG (300 MG, 5 IN 1 D), ORAL
     Route: 048
     Dates: start: 20010301
  3. NEURONTIN [Suspect]
     Indication: PAIN
     Dosage: 1500 MG (300 MG, 5 IN 1 D), ORAL
     Route: 048
     Dates: start: 20010301
  4. DIPHENHYDRAMINE HCL [Suspect]
     Indication: ILL-DEFINED DISORDER
     Dosage: ORAL
     Route: 048
  5. METOPROLOL TARTRATE [Suspect]
     Indication: ILL-DEFINED DISORDER
     Dosage: 20 MG (1 IN 1 D)
  6. CARISOPRODOL [Suspect]
     Indication: ILL-DEFINED DISORDER
     Dosage: (350 MG, 1 OR 2 EVERY 4-6HOURS AS NECESSARY), ORAL
     Route: 048
  7. MEPROBAMATE [Suspect]
     Indication: ILL-DEFINED DISORDER
  8. HYDROMORPHONE HCL [Suspect]
     Indication: ILL-DEFINED DISORDER
     Dosage: (4 MG, 1-2 EVERY 4-6HOURS AS NECESSARY), ORAL
     Route: 048
  9. PREDNISONE [Concomitant]
  10. DURAGESIC (FENTANYL) [Concomitant]
  11. PLENDIL [Concomitant]
  12. CATAPRES (CLONIDIPINE) [Concomitant]
  13. ALTACE [Concomitant]
  14. POTASSIUM ACETATE [Concomitant]
  15. PREVACID [Concomitant]
  16. CLONAZEPAM [Concomitant]
  17. URSODIOL (URSODEOXYCHOLIC ACID) [Concomitant]
  18. STARLIX [Concomitant]
  19. LORAZEPAM [Concomitant]
  20. ALBUTEROL [Concomitant]
  21. LASIX [Concomitant]

REACTIONS (10)
  - ASTHENIA [None]
  - COMPLETED SUICIDE [None]
  - DEPRESSION [None]
  - DIZZINESS [None]
  - DRUG INEFFECTIVE [None]
  - DRUG TOXICITY [None]
  - ELECTROENCEPHALOGRAM ABNORMAL [None]
  - FATIGUE [None]
  - SELF INJURIOUS BEHAVIOUR [None]
  - SUICIDAL IDEATION [None]
